FAERS Safety Report 4745797-6 (Version None)
Quarter: 2005Q3

REPORT INFORMATION
  Report Type: 
  Country: None (occurrence: None)
  Receive Date: 20050816
  Receipt Date: 20050801
  Transmission Date: 20060218
  Serious: Yes (Hospitalization)
  Sender: FDA-Public Use
  Company Number: 200512246JP

PATIENT
  Age: 54 Year
  Sex: Female

DRUGS (9)
  1. ARAVA [Suspect]
     Indication: RHEUMATOID ARTHRITIS
     Route: 048
     Dates: start: 20040609, end: 20040617
  2. OMEPRAZOLE [Concomitant]
     Indication: GASTRIC ULCER
     Route: 048
  3. ASPARA K [Concomitant]
     Indication: HYPOKALAEMIA
     Route: 048
  4. ALDACTONE [Concomitant]
     Indication: HYPOKALAEMIA
     Route: 048
  5. FELDENE [Concomitant]
     Indication: RHEUMATOID ARTHRITIS
     Route: 054
  6. PREDONINE [Concomitant]
     Indication: RHEUMATOID ARTHRITIS
     Route: 048
  7. AMLODIN [Concomitant]
     Indication: HYPERTENSION
     Route: 048
  8. SELOKEN [Concomitant]
     Indication: HYPERTENSION
     Route: 048
  9. SALIGREN [Concomitant]
     Indication: SJOGREN'S SYNDROME
     Route: 048

REACTIONS (1)
  - ATRIOVENTRICULAR BLOCK [None]
